FAERS Safety Report 7668824-5 (Version None)
Quarter: 2011Q3

REPORT INFORMATION
  Report Type: 
  Country: None (occurrence: None)
  Receive Date: 20110808
  Receipt Date: 20110802
  Transmission Date: 20111222
  Serious: Yes (Hospitalization, Disabling, Other)
  Sender: FDA-Public Use
  Company Number: CA-ALLERGAN-1110439US

PATIENT
  Age: 71 Year
  Sex: Male

DRUGS (3)
  1. BOTULINUM TOXIN TYPE A [Suspect]
     Dosage: 600 UNK, UNK
     Dates: start: 20110301, end: 20110301
  2. BOTULINUM TOXIN TYPE A [Suspect]
     Indication: MUSCLE SPASTICITY
     Dosage: 600 UNITS, SINGLE
     Route: 030
     Dates: start: 20110627, end: 20110627
  3. BOTULINUM TOXIN TYPE A [Suspect]
     Dosage: 400 UNK, UNK
     Dates: start: 20101001, end: 20101001

REACTIONS (2)
  - ABASIA [None]
  - MUSCULAR WEAKNESS [None]
